FAERS Safety Report 8351531 (Version 8)
Quarter: 2012Q4

REPORT INFORMATION
  Report Type: 
  Country: US (occurrence: US)
  Receive Date: 20120124
  Receipt Date: 20121115
  Transmission Date: 20130627
  Serious: Yes (Hospitalization, Other)
  Sender: FDA-Public Use
  Company Number: US-009507513-1201USA02842

PATIENT

DRUGS (2)
  1. FOSAMAX [Suspect]
     Indication: OSTEOPOROSIS
     Dosage: 70 mg, QW
     Route: 048
     Dates: start: 20010408, end: 20080601
  2. ALENDRONATE SODIUM [Suspect]
     Indication: OSTEOPOROSIS
     Dosage: 70 mg, QW
     Route: 048
     Dates: start: 20080602, end: 20110518

REACTIONS (28)
  - Low turnover osteopathy [Unknown]
  - Femur fracture [Unknown]
  - Tooth disorder [Unknown]
  - Vitamin D deficiency [Unknown]
  - Rheumatoid arthritis [Not Recovered/Not Resolved]
  - Hyperglycaemia [Unknown]
  - Dysmenorrhoea [Unknown]
  - Sinusitis [Unknown]
  - Rhinitis allergic [Not Recovered/Not Resolved]
  - Rotator cuff syndrome [Not Recovered/Not Resolved]
  - Tooth fracture [Not Recovered/Not Resolved]
  - Headache [Recovering/Resolving]
  - Herpes zoster [Unknown]
  - Blood pressure increased [Not Recovered/Not Resolved]
  - Dermatitis [Unknown]
  - Carpal tunnel syndrome [Unknown]
  - Bursitis [Unknown]
  - Osteoarthritis [Unknown]
  - Tendon disorder [Unknown]
  - Osteoarthritis [Unknown]
  - Osteopenia [Unknown]
  - Tendon disorder [Unknown]
  - Exostosis [Unknown]
  - Uterine leiomyoma [Unknown]
  - Menorrhagia [Unknown]
  - Cervicitis [Unknown]
  - Fibromyalgia [Unknown]
  - Cardiac murmur [Unknown]
